FAERS Safety Report 11745948 (Version 1)
Quarter: 2015Q4

REPORT INFORMATION
  Report Type: Spontaneous
  Country: US (occurrence: None)
  Receive Date: 20151116
  Receipt Date: 20151116
  Transmission Date: 20160304
  Serious: Yes (Other)
  Sender: FDA-Public Use
  Company Number: None

PATIENT
  Age: 18 Year
  Sex: Female
  Weight: 88.9 kg

DRUGS (2)
  1. ISOVUE 300 [Suspect]
     Active Substance: IOPAMIDOL
     Indication: SCAN WITH CONTRAST
     Dosage: 130 ML X 1 IVP OVER 65 SECONDS
     Route: 042
     Dates: start: 20150915
  2. DIPHENHYDRAMINE. [Suspect]
     Active Substance: DIPHENHYDRAMINE
     Indication: ADVERSE REACTION
     Dosage: 50 MG IVP X 1
     Route: 042
     Dates: start: 20150915

REACTIONS (10)
  - Chills [None]
  - Blood pressure systolic increased [None]
  - Chest discomfort [None]
  - Respiratory rate increased [None]
  - Dyspnoea [None]
  - Unresponsive to stimuli [None]
  - Palpitations [None]
  - Heart rate increased [None]
  - Somnolence [None]
  - Anxiety [None]

NARRATIVE: CASE EVENT DATE: 20150915
